FAERS Safety Report 4833736-9 (Version None)
Quarter: 2005Q4

REPORT INFORMATION
  Report Type: 
  Country: None (occurrence: None)
  Receive Date: 20051115
  Receipt Date: 20051101
  Transmission Date: 20060501
  Serious: Yes (Death, Hospitalization, Other)
  Sender: FDA-Public Use
  Company Number: 217474

PATIENT
  Age: 55 Year
  Sex: Male

DRUGS (3)
  1. RAPTIVA [Suspect]
     Indication: PSORIASIS
     Dosage: 1.3 ML, 1/WEEK
     Dates: start: 20021101
  2. LISINOPRIL [Concomitant]
  3. HCTZ (HYDROCHLOROTHIAZIDE) [Concomitant]

REACTIONS (27)
  - ARRHYTHMIA [None]
  - ASCITES [None]
  - B-CELL LYMPHOMA [None]
  - BRADYCARDIA [None]
  - CARDIOMEGALY [None]
  - CD4 LYMPHOCYTES ABNORMAL [None]
  - DISSEMINATED INTRAVASCULAR COAGULATION [None]
  - GASTRITIS [None]
  - GASTROINTESTINAL EROSION [None]
  - GENERAL PHYSICAL HEALTH DETERIORATION [None]
  - GENERALISED OEDEMA [None]
  - METASTASES TO BONE MARROW [None]
  - METASTASES TO LIVER [None]
  - METASTASES TO LYMPH NODES [None]
  - METASTASES TO PANCREAS [None]
  - METASTASES TO SPLEEN [None]
  - PLEURAL EFFUSION [None]
  - PULMONARY OEDEMA [None]
  - PYREXIA [None]
  - RENAL CYST [None]
  - RENAL FAILURE ACUTE [None]
  - SMALL INTESTINAL HAEMORRHAGE [None]
  - SPLENIC INFARCTION [None]
  - STASIS DERMATITIS [None]
  - STRESS ULCER [None]
  - TUMOUR LYSIS SYNDROME [None]
  - VENTRICULAR FIBRILLATION [None]
